FAERS Safety Report 13903376 (Version 2)
Quarter: 2017Q4

REPORT INFORMATION
  Report Type: Spontaneous
  Country: US (occurrence: US)
  Receive Date: 20170824
  Receipt Date: 20171109
  Transmission Date: 20180320
  Serious: No
  Sender: FDA-Public Use
  Company Number: US-009507513-1708USA009482

PATIENT
  Sex: Female

DRUGS (1)
  1. ZEPATIER [Suspect]
     Active Substance: ELBASVIR\GRAZOPREVIR
     Indication: CHRONIC HEPATITIS C
     Dosage: 1 TABLET (50/100MG) DAILY
     Route: 048
     Dates: start: 20170722

REACTIONS (1)
  - Abnormal dreams [Unknown]

NARRATIVE: CASE EVENT DATE: 2017
